FAERS Safety Report 19625784 (Version 1)
Quarter: 2021Q3

REPORT INFORMATION
  Report Type: Other
  Country: US (occurrence: US)
  Receive Date: 20210728
  Receipt Date: 20210728
  Transmission Date: 20211014
  Serious: Yes (Other)
  Sender: FDA-Public Use
  Company Number: US-APOTEX-2021AP024896

PATIENT
  Age: 79 Year
  Sex: Male

DRUGS (1)
  1. RANITIDINE TABLETS [Suspect]
     Active Substance: RANITIDINE HYDROCHLORIDE
     Dosage: DAILY
     Route: 065
     Dates: start: 201812, end: 201903

REACTIONS (3)
  - Bladder cancer [Unknown]
  - Bladder cancer [Unknown]
  - Prostate cancer [Unknown]

NARRATIVE: CASE EVENT DATE: 20180101
